FAERS Safety Report 8478995-9 (Version None)
Quarter: 2012Q2

REPORT INFORMATION
  Report Type: 
  Country: None (occurrence: None)
  Receive Date: 20120629
  Receipt Date: 20120619
  Transmission Date: 20120825
  Serious: Yes (Hospitalization, Disabling, Other)
  Sender: FDA-Public Use
  Company Number: US-MERCK-1203USA03400

PATIENT
  Age: 67 Year
  Sex: Female

DRUGS (3)
  1. FOSAMAX [Suspect]
     Indication: OSTEOPENIA
     Route: 048
     Dates: start: 19960101, end: 20100701
  2. BONIVA [Suspect]
     Route: 048
  3. FOSAMAX [Suspect]
     Indication: OSTEOPOROSIS
     Route: 048
     Dates: start: 19960101, end: 20100701

REACTIONS (20)
  - FEMUR FRACTURE [None]
  - DRUG HYPERSENSITIVITY [None]
  - HYDRONEPHROSIS [None]
  - PLEURAL CALCIFICATION [None]
  - OSTEOARTHRITIS [None]
  - HYPERTENSION [None]
  - CARDIAC DISORDER [None]
  - RIB FRACTURE [None]
  - CATARACT [None]
  - DYSLIPIDAEMIA [None]
  - OSTEOPOROSIS [None]
  - FALL [None]
  - NEPHROLITHIASIS [None]
  - TOOTH DISORDER [None]
  - PTERYGIUM [None]
  - CHEST PAIN [None]
  - LOW TURNOVER OSTEOPATHY [None]
  - MENISCUS LESION [None]
  - POLYARTHRITIS [None]
  - RHINITIS [None]
